FAERS Safety Report 5928949-9 (Version None)
Quarter: 2008Q3

REPORT INFORMATION
  Report Type: 
  Country: None (occurrence: None)
  Receive Date: 20080925
  Receipt Date: 20080109
  Transmission Date: 20090109
  Serious: Yes (Hospitalization, Other)
  Sender: FDA-Public Use
  Company Number: 1713741/2008/000007

PATIENT
  Sex: Female

DRUGS (1)
  1. DELFLEX W/ DEXTROSE 4.25% LOW MAGNESIUM LOW CALCIUM [Suspect]
     Indication: RENAL FAILURE CHRONIC
     Dosage: INTRAPERITONEALLY
     Route: 033
     Dates: start: 20080104

REACTIONS (1)
  - PERITONITIS [None]
